FAERS Safety Report 4687301-7 (Version None)
Quarter: 2005Q2

REPORT INFORMATION
  Report Type: 
  Country: None (occurrence: None)
  Receive Date: 20050608
  Receipt Date: 20050526
  Transmission Date: 20051028
  Serious: Yes (Hospitalization, Other)
  Sender: FDA-Public Use
  Company Number: 2005080942

PATIENT
  Sex: Female

DRUGS (7)
  1. CELEBREX [Suspect]
     Indication: ARTHRALGIA
     Dosage: 400 MG (200 MG, 2 IN 1 D), ORAL
     Route: 048
  2. MESALAMINE [Concomitant]
  3. DIURETICS (DIRETICS) [Concomitant]
  4. ANTICOGULANTS (ANTIHROMBOTIC AGENTS) [Concomitant]
  5. DILTIAZEM [Concomitant]
  6. VITAMINS (VITAMINS) [Concomitant]
  7. DIGOXIN [Concomitant]

REACTIONS (5)
  - ATRIAL FIBRILLATION [None]
  - HEART RATE DECREASED [None]
  - KNEE ARTHROPLASTY [None]
  - PAIN [None]
  - POST PROCEDURAL COMPLICATION [None]
